FAERS Safety Report 14373149 (Version 1)
Quarter: 2018Q1

REPORT INFORMATION
  Report Type: Report from Study
  Country: US (occurrence: US)
  Receive Date: 20180110
  Receipt Date: 20180110
  Transmission Date: 20180509
  Serious: Yes (Other)
  Sender: FDA-Public Use
  Company Number: US-MYLANLABS-2018M1000270

PATIENT
  Sex: Male

DRUGS (1)
  1. METHADONE [Suspect]
     Active Substance: METHADONE HYDROCHLORIDE
     Indication: PRODUCT USED FOR UNKNOWN INDICATION
     Dosage: CONSUMED HIS ENTIRE DAILY DOSE (240 MG) AT ONE TIME FOR A PEAK-TROUGH TEST, RATHER THAN HIS USUAL...
     Route: 065

REACTIONS (2)
  - Electrocardiogram QT prolonged [Unknown]
  - Incorrect dose administered [Unknown]
